FAERS Safety Report 20025896 (Version 1)
Quarter: 2021Q4

REPORT INFORMATION
  Report Type: Report from Study
  Country: IT (occurrence: IT)
  Receive Date: 20211102
  Receipt Date: 20211102
  Transmission Date: 20220303
  Serious: Yes (Hospitalization)
  Sender: FDA-Public Use
  Company Number: None

PATIENT
  Age: 85 Year
  Sex: Female

DRUGS (6)
  1. AMLODIPINE [Suspect]
     Active Substance: AMLODIPINE BESYLATE
     Dosage: 5 MG
     Route: 048
     Dates: start: 20210207, end: 20210901
  2. OLMESARTAN MEDOXOMIL [Concomitant]
     Active Substance: OLMESARTAN MEDOXOMIL
     Dosage: 20 MG
     Route: 048
     Dates: start: 20210702, end: 20210901
  3. ALLOPURINOL [Concomitant]
     Active Substance: ALLOPURINOL
     Dosage: 125 MG
     Route: 048
  4. RANEXA [Concomitant]
     Active Substance: RANOLAZINE
     Dosage: 500 MG
     Route: 048
     Dates: start: 20210701, end: 20210901
  5. BISOPROLOL FUMARATE [Concomitant]
     Active Substance: BISOPROLOL FUMARATE
     Dosage: 1.25 MG
     Route: 048
     Dates: start: 20210701, end: 20210901
  6. GLUCOPHAGE [Concomitant]
     Active Substance: METFORMIN HYDROCHLORIDE
     Dosage: 500 MG
     Route: 048
     Dates: start: 20210101, end: 20210901

REACTIONS (1)
  - Gravitational oedema [Recovering/Resolving]

NARRATIVE: CASE EVENT DATE: 20210828
